FAERS Safety Report 4817794-3 (Version None)
Quarter: 2005Q4

REPORT INFORMATION
  Report Type: 
  Country: None (occurrence: None)
  Receive Date: 20051102
  Receipt Date: 20050802
  Transmission Date: 20060501
  Serious: Yes (Hospitalization)
  Sender: FDA-Public Use
  Company Number: 2005PK01452

PATIENT
  Age: 26052 Day
  Sex: Male
  Weight: 60 kg

DRUGS (8)
  1. ZD6474 [Suspect]
     Indication: NON-SMALL CELL LUNG CANCER
     Route: 048
     Dates: start: 20050531
  2. TAXOL [Suspect]
     Indication: NON-SMALL CELL LUNG CANCER
     Route: 042
     Dates: start: 20050531
  3. CARBOPLATIN [Suspect]
     Indication: NON-SMALL CELL LUNG CANCER
     Dosage: AUC 6
     Route: 042
     Dates: start: 20050531
  4. ASPIRIN [Concomitant]
     Indication: CORONARY ARTERY DISEASE
     Route: 048
  5. JODID [Concomitant]
     Indication: HYPOTHYROIDISM
     Route: 048
  6. UNAT [Concomitant]
     Indication: DYSURIA
     Route: 048
  7. MST [Concomitant]
     Indication: PAIN
     Route: 048
  8. NEURONTIN [Concomitant]
     Indication: POLYNEUROPATHY

REACTIONS (7)
  - ANOREXIA [None]
  - DIZZINESS [None]
  - DRY MOUTH [None]
  - DYSPNOEA [None]
  - FATIGUE [None]
  - GENERAL PHYSICAL HEALTH DETERIORATION [None]
  - WEIGHT DECREASED [None]
